FAERS Safety Report 6423286-0 (Version None)
Quarter: 2009Q4

REPORT INFORMATION
  Report Type: 
  Country: None (occurrence: None)
  Receive Date: 20091102
  Receipt Date: 20091022
  Transmission Date: 20100525
  Serious: Yes (Death, Other)
  Sender: FDA-Public Use
  Company Number: US-ELI_LILLY_AND_COMPANY-US200910005884

PATIENT
  Age: 47 Year
  Sex: Male

DRUGS (3)
  1. SYMBYAX [Suspect]
     Indication: HALLUCINATION
     Dosage: 1 D/F, UNK
  2. METHADONE [Concomitant]
  3. ANTIHYPERTENSIVES [Concomitant]
     Indication: BLOOD PRESSURE

REACTIONS (3)
  - CARDIAC FAILURE CONGESTIVE [None]
  - OFF LABEL USE [None]
  - POTENTIATING DRUG INTERACTION [None]
